FAERS Safety Report 22802676 (Version 4)
Quarter: 2024Q1

REPORT INFORMATION
  Report Type: Other
  Country: JP (occurrence: JP)
  Receive Date: 20230809
  Receipt Date: 20240223
  Transmission Date: 20240410
  Serious: Yes (Hospitalization, Other)
  Sender: FDA-Public Use
  Company Number: JP-ASTELLAS-2023JP009318

PATIENT
  Age: 60 Year
  Sex: Male
  Weight: 44.4 kg

DRUGS (29)
  1. PROGRAF [Interacting]
     Active Substance: TACROLIMUS
     Indication: Dermatomyositis
     Dosage: 1 MG, TWICE DAILY, AFTER BREAKFAST AND AFTER DINNER
     Route: 048
     Dates: start: 20221013, end: 20230720
  2. PROGRAF [Interacting]
     Active Substance: TACROLIMUS
     Indication: Interstitial lung disease
     Dosage: 2 MG/DAY, UNKNOWN FREQ.
     Route: 048
     Dates: start: 20230727
  3. PROGRAF [Interacting]
     Active Substance: TACROLIMUS
     Indication: Polymyositis
  4. PROGRAF [Interacting]
     Active Substance: TACROLIMUS
     Indication: Dermatomyositis
     Dosage: 0.5 MG, ONCE DAILY, AFTER DINNER
     Route: 048
     Dates: start: 20221013, end: 20230720
  5. PROGRAF [Interacting]
     Active Substance: TACROLIMUS
     Indication: Interstitial lung disease
  6. PROGRAF [Interacting]
     Active Substance: TACROLIMUS
     Indication: Polymyositis
  7. PAXLOVID [Interacting]
     Active Substance: NIRMATRELVIR\RITONAVIR
     Indication: COVID-19
     Dosage: NIRMATRELVIR 300MG, RITONAVIR 100MG, TWICE DAILY
     Route: 048
     Dates: start: 20230716, end: 20230719
  8. RIFAMPIN [Interacting]
     Active Substance: RIFAMPIN
     Indication: Drug level increased
     Route: 048
     Dates: start: 20230720, end: 20230722
  9. ZOPICLONE [Concomitant]
     Active Substance: ZOPICLONE
     Indication: Product used for unknown indication
     Dosage: 7.5 MG, ONCE DAILY, BEFORE BEDTIME
     Route: 065
  10. LOXOPROFEN SODIUM [Concomitant]
     Active Substance: LOXOPROFEN SODIUM
     Indication: Product used for unknown indication
     Dosage: 100 MG, ONCE DAILY, AFTER BATHING
     Route: 065
  11. MINODRONIC ACID [Concomitant]
     Active Substance: MINODRONIC ACID
     Indication: Product used for unknown indication
     Dosage: 50 MG, ONCE DAILY, IMMEDIATELY AFTER WAKING UP IN THE MORNING, TOOK IT ON 15TH OF EACH MONTH
     Route: 048
  12. RYBELSUS [Concomitant]
     Active Substance: SEMAGLUTIDE
     Indication: Product used for unknown indication
     Dosage: 7 MG, ONCE DAILY, 30 MINUTES BEFORE BREAKFAST
     Route: 065
     Dates: start: 20230306
  13. CANAGLIFLOZIN [Concomitant]
     Active Substance: CANAGLIFLOZIN
     Indication: Type 2 diabetes mellitus
     Dosage: 100 MG, ONCE DAILY, AFTER BREAKFAST
     Route: 065
  14. VONOPRAZAN FUMARATE [Concomitant]
     Active Substance: VONOPRAZAN FUMARATE
     Indication: Product used for unknown indication
     Dosage: 10 MG, ONCE DAILY, AFTER BREAKFAST
     Route: 065
  15. NIFEDIPINE [Concomitant]
     Active Substance: NIFEDIPINE
     Indication: Product used for unknown indication
     Dosage: 20 MG, ONCE DAILY, AFTER BREAKFAST
     Route: 065
  16. NIFEDIPINE [Concomitant]
     Active Substance: NIFEDIPINE
     Indication: Prinzmetal angina
     Dosage: 40 MG, TWICE DAILY, AFTER BREAKFAST AND AFTER DINNER
     Route: 065
     Dates: start: 20230721
  17. PREDNISOLONE [Concomitant]
     Active Substance: PREDNISOLONE
     Indication: Polymyositis
     Dosage: 2 MG, ONCE DAILY, AFTER BREAKFAST
     Route: 065
  18. PREDONINE [Concomitant]
     Active Substance: PREDNISOLONE
     Indication: Polymyositis
     Dosage: 5 MG, ONCE DAILY, AFTER BREAKFAST
     Route: 065
  19. ALFACALCIDOL [Concomitant]
     Active Substance: ALFACALCIDOL
     Indication: Product used for unknown indication
     Dosage: 0.5 ?G, ONCE DAILY, AFTER BREAKFAST
     Route: 065
  20. SULFAMETHOXAZOLE\TRIMETHOPRIM [Concomitant]
     Active Substance: SULFAMETHOXAZOLE\TRIMETHOPRIM
     Indication: Infection prophylaxis
     Dosage: SULFAMETHOXAZOLE 400 MG, TRIMETHOPRIM 80 MG, AFTER BREAKFAST, MON, WED, FRI
     Route: 065
  21. REMDESIVIR [Concomitant]
     Active Substance: REMDESIVIR
     Indication: COVID-19
     Route: 041
  22. ASPIRIN [Concomitant]
     Active Substance: ASPIRIN
     Indication: Pericarditis
     Route: 065
     Dates: start: 20230721
  23. MAGNESIUM SULFATE [Concomitant]
     Active Substance: MAGNESIUM SULFATE\MAGNESIUM SULFATE HEPTAHYDRATE
     Indication: Torsade de pointes
     Route: 042
     Dates: start: 20230721
  24. LIDOCAINE [Concomitant]
     Active Substance: LIDOCAINE
     Indication: Torsade de pointes
     Dosage: 6 ML/H, UNKNOWN FREQ.
     Route: 041
     Dates: start: 20230721
  25. LIDOCAINE [Concomitant]
     Active Substance: LIDOCAINE
     Dosage: 3 ML/H, UNKNOWN FREQ.
     Route: 041
     Dates: start: 20230722, end: 20230723
  26. NITROGLYCERIN [Concomitant]
     Active Substance: NITROGLYCERIN
     Indication: Prinzmetal angina
     Dosage: 3ML/H, UNKNOWN FREQ.
     Route: 041
     Dates: start: 20230721, end: 20230722
  27. ISOSORBIDE DINITRATE [Concomitant]
     Active Substance: ISOSORBIDE DINITRATE
     Indication: Prinzmetal angina
     Route: 050
     Dates: start: 20230721
  28. SODIUM POLYSTYRENE SULFONATE [Concomitant]
     Active Substance: SODIUM POLYSTYRENE SULFONATE
     Indication: Hyperkalaemia
     Route: 065
  29. SODIUM POLYSTYRENE SULFONATE [Concomitant]
     Active Substance: SODIUM POLYSTYRENE SULFONATE
     Route: 065

REACTIONS (7)
  - Immunosuppressant drug level increased [Recovered/Resolved]
  - Acute kidney injury [Recovered/Resolved]
  - Prinzmetal angina [Recovering/Resolving]
  - Immunosuppressant drug level decreased [Unknown]
  - COVID-19 [Unknown]
  - Drug interaction [Unknown]
  - Drug interaction [Unknown]

NARRATIVE: CASE EVENT DATE: 20230716
